FAERS Safety Report 7724636-5 (Version None)
Quarter: 2011Q3

REPORT INFORMATION
  Report Type: 
  Country: None (occurrence: None)
  Receive Date: 20110901
  Receipt Date: 20110822
  Transmission Date: 20111222
  Serious: Yes (Hospitalization)
  Sender: FDA-Public Use
  Company Number: CA-UCBSA-039847

PATIENT
  Sex: Female
  Weight: 66.81 kg

DRUGS (15)
  1. RABEPRAZOLE SODIUM [Concomitant]
     Route: 048
  2. RAMIPRIL [Concomitant]
     Route: 048
  3. ARAVA [Concomitant]
     Indication: RHEUMATOID ARTHRITIS
     Route: 048
     Dates: start: 20080101
  4. PLAQUENIL [Concomitant]
     Indication: RHEUMATOID ARTHRITIS
     Route: 048
     Dates: start: 19880101
  5. CALCIUM CARBONATE [Concomitant]
     Route: 048
  6. ALDACTONE [Concomitant]
     Route: 048
  7. FOLIC ACID [Concomitant]
     Route: 048
  8. VITAMIN D [Concomitant]
     Route: 048
  9. SULFASALAZINE [Concomitant]
     Indication: RHEUMATOID ARTHRITIS
     Route: 048
     Dates: start: 20040101
  10. MELOXICAM [Concomitant]
     Route: 048
  11. LIPITOR [Concomitant]
     Route: 048
  12. ASCORBIC ACID [Concomitant]
     Route: 048
  13. CIMZIA [Suspect]
     Indication: RHEUMATOID ARTHRITIS
     Dosage: 400 MG ON WEEKS 0, 2 AND 4
     Route: 058
     Dates: start: 20110602
  14. GABAPENTIN [Suspect]
     Dates: start: 20110816
  15. PREDNISONE [Concomitant]
     Indication: RHEUMATOID ARTHRITIS
     Route: 048
     Dates: start: 19780101

REACTIONS (4)
  - NAUSEA [None]
  - ARTHRALGIA [None]
  - PANCREATITIS [None]
  - DIZZINESS [None]
